FAERS Safety Report 8497798-2 (Version None)
Quarter: 2012Q3

REPORT INFORMATION
  Report Type: 
  Country: None (occurrence: None)
  Receive Date: 20120709
  Receipt Date: 20120611
  Transmission Date: 20120928
  Serious: No
  Sender: FDA-Public Use
  Company Number: US-AMGEN-USASP2012036453

PATIENT
  Age: 33 Year
  Sex: Male

DRUGS (2)
  1. ENBREL [Suspect]
     Indication: PSORIASIS
     Dosage: 50 MG, 2 TIMES/WK
     Dates: start: 20120315, end: 20120501
  2. PREDNISONE [Concomitant]
     Dosage: UNK

REACTIONS (3)
  - PSORIASIS [None]
  - PHARYNGITIS STREPTOCOCCAL [None]
  - FEELING JITTERY [None]
